FAERS Safety Report 5738117-1 (Version None)
Quarter: 2008Q2

REPORT INFORMATION
  Report Type: 
  Country: None (occurrence: None)
  Receive Date: 20080514
  Receipt Date: 20080502
  Transmission Date: 20081010
  Serious: Yes (Other)
  Sender: FDA-Public Use
  Company Number: BR-PFIZER INC-2008021269

PATIENT
  Sex: Female
  Weight: 47 kg

DRUGS (4)
  1. PHENYTOIN SODIUM [Suspect]
     Indication: CONVULSION
     Route: 048
     Dates: start: 20060101, end: 20060101
  2. HIDANTAL [Suspect]
     Indication: CONVULSION
  3. DEPAKENE [Concomitant]
     Route: 065
  4. ALL OTHER THERAPEUTIC PRODUCTS [Concomitant]
     Route: 065

REACTIONS (2)
  - CONVULSION [None]
  - PETIT MAL EPILEPSY [None]
